FAERS Safety Report 12681892 (Version 1)
Quarter: 2016Q3

REPORT INFORMATION
  Report Type: Spontaneous
  Country: FR (occurrence: FR)
  Receive Date: 20160824
  Receipt Date: 20160824
  Transmission Date: 20161109
  Serious: Yes (Hospitalization)
  Sender: FDA-Public Use
  Company Number: FR-MYLANLABS-2016M1034940

PATIENT

DRUGS (6)
  1. AMIKACIN [Concomitant]
     Active Substance: AMIKACIN
     Indication: CYSTITIS
     Dosage: UNK
     Dates: start: 20160725, end: 20160730
  2. CEFEPIME MYLAN 2 G, POUDRE POUR SOLUTION INJECTABLE [Suspect]
     Active Substance: CEFEPIME HYDROCHLORIDE
     Indication: OSTEOARTHROPATHY
     Dosage: 2 G, TID
     Route: 042
     Dates: start: 20160725, end: 20160730
  3. CEFEPIME MYLAN 2 G, POUDRE POUR SOLUTION INJECTABLE [Suspect]
     Active Substance: CEFEPIME HYDROCHLORIDE
     Indication: OSTEOMYELITIS
     Dosage: UNK
     Dates: start: 20160802
  4. VANCOMICINA MYLAN [Suspect]
     Active Substance: VANCOMYCIN
     Indication: URINARY TRACT INFECTION
     Dosage: UNK
     Dates: start: 20160802
  5. AMIKLIN                            /00391001/ [Concomitant]
     Active Substance: AMIKACIN SULFATE
     Indication: CYSTITIS
     Dosage: 30 MG/KG, UNK
     Dates: start: 20160725, end: 20160725
  6. VANCOMICINA MYLAN [Suspect]
     Active Substance: VANCOMYCIN
     Indication: CYSTITIS
     Dosage: 15 MG/KG, BID
     Route: 042
     Dates: start: 20160727, end: 20160730

REACTIONS (1)
  - Encephalopathy [Recovered/Resolved]

NARRATIVE: CASE EVENT DATE: 20160729
